FAERS Safety Report 5495630-2 (Version None)
Quarter: 2007Q4

REPORT INFORMATION
  Report Type: 
  Country: None (occurrence: None)
  Receive Date: 20071025
  Receipt Date: 20071016
  Transmission Date: 20080405
  Serious: Yes (Hospitalization)
  Sender: FDA-Public Use
  Company Number: US-JNJFOC-20071004332

PATIENT
  Sex: Female
  Weight: 78.93 kg

DRUGS (7)
  1. FENTANYL TRANSDERMAL SYSTEM [Suspect]
     Indication: OSTEOPOROSIS
     Route: 062
  2. DURAGESIC-100 [Suspect]
     Indication: OSTEOPOROSIS
     Route: 062
  3. CELEXA [Concomitant]
     Indication: DEPRESSION
     Route: 048
  4. ATENOLOL [Concomitant]
     Indication: BLOOD PRESSURE
     Route: 048
  5. COUMADIN [Concomitant]
     Indication: ANTICOAGULANT THERAPY
     Route: 048
  6. NEURONTIN [Concomitant]
     Indication: MUSCLE SPASMS
     Route: 048
  7. DETROL LA [Concomitant]
     Indication: INCONTINENCE
     Dosage: AT BEDTIME
     Route: 048

REACTIONS (5)
  - ASTHENIA [None]
  - FALL [None]
  - INADEQUATE ANALGESIA [None]
  - PAIN [None]
  - SPINAL FRACTURE [None]
